FAERS Safety Report 4335098-2 (Version None)
Quarter: 2004Q2

REPORT INFORMATION
  Report Type: 
  Country: None (occurrence: None)
  Receive Date: 20040405
  Receipt Date: 20040326
  Transmission Date: 20050107
  Serious: Yes (Other)
  Sender: FDA-Public Use
  Company Number: US070598

PATIENT
  Age: 62 Year
  Sex: Female

DRUGS (7)
  1. ARANESP [Suspect]
     Indication: RENAL FAILURE CHRONIC
     Dosage: 80 MCG, 1 IN 1 WEEKS, IV
     Route: 042
     Dates: start: 20031124
  2. ERYTHROPOIETIN HUMAN [Suspect]
     Dosage: 10000 U, 2 IN 1 WEEKS, SC
     Route: 058
     Dates: start: 20021128, end: 20031124
  3. FLUOXETINE [Concomitant]
  4. FOSINOPRIL SODIUM [Concomitant]
  5. SINEMET [Concomitant]
  6. METOCLOPRAMIDE HYDROCHLORIDE [Concomitant]
  7. RANITIDINE [Concomitant]

REACTIONS (7)
  - ANAEMIA [None]
  - BLOOD ALBUMIN DECREASED [None]
  - BLOOD FOLATE ABNORMAL [None]
  - BLOOD IRON DECREASED [None]
  - DRUG EFFECT DECREASED [None]
  - TRANSFERRIN SATURATION DECREASED [None]
  - VITAMIN B12 INCREASED [None]
